FAERS Safety Report 24318625 (Version 2)
Quarter: 2025Q1

REPORT INFORMATION
  Report Type: Report from Study
  Country: US (occurrence: US)
  Receive Date: 20240913
  Receipt Date: 20250129
  Transmission Date: 20250409
  Serious: Yes (Hospitalization, Other)
  Sender: AURINIA PHARMACEUTICALS
  Company Number: US-OTSUKA PHARMACEUTICAL NETHERLANDS B.V.-AUR-006471

PATIENT
  Age: 21 Year
  Sex: Female
  Weight: 81.179 kg

DRUGS (8)
  1. LUPKYNIS [Suspect]
     Active Substance: VOCLOSPORIN
     Indication: Lupus nephritis
     Dosage: 23.7 MILLIGRAM, BID
     Route: 048
     Dates: start: 20240419
  2. LUPKYNIS [Suspect]
     Active Substance: VOCLOSPORIN
     Dates: start: 20240804
  3. LUPKYNIS [Suspect]
     Active Substance: VOCLOSPORIN
     Dosage: 23.7 MILLIGRAM, BID
     Route: 048
  4. PLAQUENIL [Concomitant]
     Active Substance: HYDROXYCHLOROQUINE SULFATE
     Indication: Product used for unknown indication
     Dosage: 200 MILLIGRAM, QD
     Route: 048
     Dates: start: 20240715
  5. CLONIDINE [Concomitant]
     Active Substance: CLONIDINE
     Indication: Product used for unknown indication
     Dates: start: 20240517
  6. REMERON [Concomitant]
     Active Substance: MIRTAZAPINE
     Indication: Product used for unknown indication
     Dosage: 7.5 MILLIGRAM, QD NIGHTLY
     Route: 048
     Dates: start: 20240719
  7. BACTRIM [Concomitant]
     Active Substance: SULFAMETHOXAZOLE\TRIMETHOPRIM
     Indication: Product used for unknown indication
     Dosage: 400-80MG, QD
     Route: 048
     Dates: start: 20240715
  8. CELLCEPT [Concomitant]
     Active Substance: MYCOPHENOLATE MOFETIL
     Indication: Product used for unknown indication
     Dosage: 1000 MILLIGRAM, BID
     Route: 048
     Dates: start: 20240809

REACTIONS (12)
  - Autoimmune retinopathy [Recovering/Resolving]
  - Dehydration [Recovered/Resolved]
  - Central vision loss [Not Recovered/Not Resolved]
  - Diarrhoea [Recovered/Resolved]
  - Acute kidney injury [Unknown]
  - Blood creatinine increased [Recovered/Resolved]
  - Urine albumin/creatinine ratio increased [Unknown]
  - White blood cell count increased [Unknown]
  - Platelet count increased [Unknown]
  - Vitreous floaters [Recovering/Resolving]
  - Orbital oedema [Recovering/Resolving]
  - Oedema [Recovered/Resolved]

NARRATIVE: CASE EVENT DATE: 20240503
